FAERS Safety Report 14441298 (Version 1)
Quarter: 2018Q1

REPORT INFORMATION
  Report Type: Spontaneous
  Country: FR (occurrence: FR)
  Receive Date: 20180125
  Receipt Date: 20180125
  Transmission Date: 20180509
  Serious: Yes (Hospitalization)
  Sender: FDA-Public Use
  Company Number: FR-SA-2018SA014614

PATIENT
  Age: 56 Year
  Sex: Male
  Weight: 82 kg

DRUGS (17)
  1. RAMIPRIL. [Suspect]
     Active Substance: RAMIPRIL
     Indication: HYPERTENSION
     Route: 048
     Dates: start: 201606, end: 20171209
  2. LYRICA [Concomitant]
     Active Substance: PREGABALIN
  3. VALIUM [Concomitant]
     Active Substance: DIAZEPAM
  4. FUROSEMIDE. [Concomitant]
     Active Substance: FUROSEMIDE
  5. LANTUS [Concomitant]
     Active Substance: INSULIN GLARGINE
  6. DIFICLIR [Suspect]
     Active Substance: FIDAXOMICIN
     Indication: CLOSTRIDIUM DIFFICILE COLITIS
     Route: 048
     Dates: start: 20171102, end: 20171104
  7. NOVORAPID [Concomitant]
     Active Substance: INSULIN ASPART
  8. KARDEGIC [Concomitant]
     Active Substance: ASPIRIN DL-LYSINE
  9. STILNOX [Concomitant]
     Active Substance: ZOLPIDEM TARTRATE
  10. PREVISCAN (FLUINDIONE) [Concomitant]
     Active Substance: FLUINDIONE
  11. TERCIAN [Concomitant]
     Active Substance: CYAMEMAZINE
  12. DULOXETINE. [Concomitant]
     Active Substance: DULOXETINE
  13. APROVEL [Suspect]
     Active Substance: IRBESARTAN
     Indication: HYPERTENSION
     Route: 048
     Dates: start: 20171209
  14. CEFTRIAXONE PANPHARMA [Suspect]
     Active Substance: CEFTRIAXONE
     Indication: BACTERIAL INFECTION
     Route: 042
     Dates: start: 20171031, end: 20171103
  15. INEXIUM [Concomitant]
     Active Substance: ESOMEPRAZOLE
  16. BISOPROLOL [Concomitant]
     Active Substance: BISOPROLOL
  17. FLAGYL [Suspect]
     Active Substance: METRONIDAZOLE\METRONIDAZOLE HYDROCHLORIDE
     Indication: CLOSTRIDIUM DIFFICILE COLITIS
     Route: 048
     Dates: start: 20171104, end: 20171110

REACTIONS (1)
  - Drug reaction with eosinophilia and systemic symptoms [Recovering/Resolving]

NARRATIVE: CASE EVENT DATE: 20171211
